FAERS Safety Report 7214060-6 (Version None)
Quarter: 2011Q1

REPORT INFORMATION
  Report Type: 
  Country: None (occurrence: None)
  Receive Date: 20110107
  Receipt Date: 20101228
  Transmission Date: 20110831
  Serious: No
  Sender: FDA-Public Use
  Company Number: US-BIOGENIDEC-2010BI045169

PATIENT
  Age: 48 Year
  Sex: Female

DRUGS (1)
  1. AVONEX [Suspect]
     Indication: MULTIPLE SCLEROSIS
     Route: 030
     Dates: start: 20100101

REACTIONS (6)
  - THERMOHYPOAESTHESIA [None]
  - DYSSTASIA [None]
  - PARANOIA [None]
  - MUSCLE SPASMS [None]
  - FATIGUE [None]
  - HYPOAESTHESIA [None]
